FAERS Safety Report 6774675-6 (Version None)
Quarter: 2010Q2

REPORT INFORMATION
  Report Type: 
  Country: None (occurrence: None)
  Receive Date: 20100617
  Receipt Date: 20100325
  Transmission Date: 20101027
  Serious: Yes (Other)
  Sender: FDA-Public Use
  Company Number: US-BAYER-201013533NA

PATIENT
  Age: 25 Year
  Sex: Female
  Weight: 66 kg

DRUGS (8)
  1. YAZ [Suspect]
     Indication: DRUG USE FOR UNKNOWN INDICATION
     Route: 048
     Dates: start: 20060701, end: 20090801
  2. YASMIN [Suspect]
     Indication: DRUG USE FOR UNKNOWN INDICATION
     Route: 048
     Dates: start: 20060701, end: 20090801
  3. OCELLA [Suspect]
     Indication: DRUG USE FOR UNKNOWN INDICATION
     Route: 048
     Dates: start: 20060701, end: 20090801
  4. ALBUTEROL [Concomitant]
     Dates: start: 19990101, end: 20010101
  5. IBUPROFEN [Concomitant]
     Dates: start: 20020101
  6. NAPROXEN [Concomitant]
     Dates: start: 20020101
  7. DARVOCET [Concomitant]
     Indication: PAIN
     Route: 048
  8. LOESTRIN 24 [Concomitant]
     Dates: start: 20090901

REACTIONS (8)
  - ABDOMINAL PAIN [None]
  - BILIARY COLIC [None]
  - CHEST PAIN [None]
  - CHOLELITHIASIS [None]
  - DIARRHOEA [None]
  - GALLBLADDER DISORDER [None]
  - NAUSEA [None]
  - WEIGHT INCREASED [None]
